FAERS Safety Report 8095909-4 (Version None)
Quarter: 2012Q1

REPORT INFORMATION
  Report Type: 
  Country: None (occurrence: None)
  Receive Date: 20120129
  Receipt Date: 20111214
  Transmission Date: 20120608
  Serious: No
  Sender: FDA-Public Use
  Company Number: US-ABBOTT-11P-163-0883435-00

PATIENT
  Sex: Female

DRUGS (1)
  1. HUMIRA [Suspect]
     Indication: CROHN'S DISEASE
     Route: 058
     Dates: start: 20111117

REACTIONS (6)
  - ASTHENOPIA [None]
  - PRURITUS [None]
  - ARTHRALGIA [None]
  - VISION BLURRED [None]
  - VISUAL IMPAIRMENT [None]
  - MUSCLE SPASMS [None]
